FAERS Safety Report 24087544 (Version 2)
Quarter: 2024Q3

REPORT INFORMATION
  Report Type: Spontaneous
  Country: BD (occurrence: BD)
  Receive Date: 20240714
  Receipt Date: 20240718
  Transmission Date: 20241016
  Serious: Yes (Death)
  Sender: SANDOZ
  Company Number: BD-002147023-NVSC2024BD142916

PATIENT
  Age: 70 Year
  Sex: Female

DRUGS (1)
  1. ACLASTA [Suspect]
     Active Substance: ZOLEDRONIC ACID
     Indication: Osteoporosis
     Dosage: 5MG/100ML, ONCE IN A YEAR
     Route: 058
     Dates: start: 2021, end: 2023

REACTIONS (1)
  - Diabetes mellitus [Fatal]
